FAERS Safety Report 5692678-X (Version None)
Quarter: 2008Q2

REPORT INFORMATION
  Report Type: 
  Country: None (occurrence: None)
  Receive Date: 20080401
  Receipt Date: 20080313
  Transmission Date: 20081010
  Serious: Yes (Life-Threatening, Hospitalization)
  Sender: FDA-Public Use
  Company Number: 2008S1004195

PATIENT
  Age: 11 Year
  Sex: Male

DRUGS (13)
  1. FLUCONAZOLE [Suspect]
     Indication: CANDIDIASIS
     Dosage: 150 MG; Q12H INTRAVENOUS, 150 MG; INTRAVENOUS; Q12H
     Route: 042
  2. AMIODARONE HCL [Suspect]
     Indication: VENTRICULAR ARRHYTHMIA
     Dosage: 5 MG/KG; 2_NULL_NULL INTRAVENOUS, 5 MG/KG; INTRAVENOUS; 2_NULL_NULL
     Route: 042
  3. MEROPENEM (MEROPENEM) [Concomitant]
  4. FUROSEMIDE [Concomitant]
  5. KETAMINE (KETAMINE) [Concomitant]
  6. MIDAZOLAM HCL [Concomitant]
  7. LORAZEPAM [Concomitant]
  8. CHLORAL HYDRATE (CHLORAL HYDRATE) [Concomitant]
  9. ACETAMINOPHEN [Concomitant]
  10. BUPROFEN (IBUPROFEN) [Concomitant]
  11. AGNESIUM SULFATE (MAGNESIUM SULFATE) [Concomitant]
  12. MORPHINE [Concomitant]
  13. SODIUM BICARBONATE IN PLASTIC CONTAINER [Concomitant]

REACTIONS (7)
  - HYPOCALCAEMIA [None]
  - HYPOKALAEMIA [None]
  - HYPOMAGNESAEMIA [None]
  - RESPIRATORY ACIDOSIS [None]
  - TORSADE DE POINTES [None]
  - VENTRICULAR ARRHYTHMIA [None]
  - VENTRICULAR EXTRASYSTOLES [None]
